FAERS Safety Report 17933879 (Version 1)
Quarter: 2020Q2

REPORT INFORMATION
  Report Type: Spontaneous
  Country: DE (occurrence: DE)
  Receive Date: 20200623
  Receipt Date: 20200623
  Transmission Date: 20200714
  Serious: Yes (Hospitalization)
  Sender: FDA-Public Use
  Company Number: DE-ANIPHARMA-2020-DE-000131

PATIENT
  Age: 59 Year
  Sex: Female

DRUGS (6)
  1. PREGABALIN. [Concomitant]
     Active Substance: PREGABALIN
     Dosage: 75 MG QD / DOSE: 50 MG QD
     Route: 048
  2. PANTOPRAZOLE SODIUM. [Concomitant]
     Active Substance: PANTOPRAZOLE SODIUM
     Dosage: 40 MG QD
     Route: 048
  3. CANDESARTAN CILEXETIL. [Suspect]
     Active Substance: CANDESARTAN CILEXETIL
     Indication: PRODUCT USED FOR UNKNOWN INDICATION
     Dosage: 8 MG BID
     Route: 048
  4. ACETYLSALICYLIC ACID [Concomitant]
     Active Substance: ASPIRIN
     Dosage: 100 MG QD
     Route: 048
  5. MIRTAZAPINE. [Suspect]
     Active Substance: MIRTAZAPINE
     Dosage: 15 MG QD
     Route: 048
  6. SALBUTAMOL [Concomitant]
     Active Substance: ALBUTEROL
     Dosage: UNKNOWN DOSE, TWO TIMES A DAY
     Route: 055

REACTIONS (6)
  - Electrolyte imbalance [Unknown]
  - Tremor [Unknown]
  - Dizziness [Unknown]
  - Vomiting [Unknown]
  - Gait disturbance [Unknown]
  - General physical health deterioration [Unknown]
